FAERS Safety Report 7777542-4 (Version None)
Quarter: 2011Q3

REPORT INFORMATION
  Report Type: 
  Country: None (occurrence: None)
  Receive Date: 20110922
  Receipt Date: 20110906
  Transmission Date: 20111222
  Serious: Yes (Other)
  Sender: FDA-Public Use
  Company Number: FK201101957

PATIENT
  Age: 65 Year
  Sex: Male

DRUGS (3)
  1. OXALIPLATIN [Suspect]
     Indication: RECTAL CANCER METASTATIC
     Dosage: 100 MG
  2. LEUCOVORIN CALCIUM [Suspect]
     Indication: RECTAL CANCER METASTATIC
     Dosage: 150 MG 1 IN 1 D
  3. FLUOROURACIL [Suspect]
     Indication: RECTAL CANCER METASTATIC
     Dosage: 750 MG 1 IN 1 D, 450 MG 1 IN 1 D

REACTIONS (11)
  - METASTASES TO MENINGES [None]
  - NEUROPATHY PERIPHERAL [None]
  - RECTAL CANCER [None]
  - HYPERSENSITIVITY [None]
  - GAIT DISTURBANCE [None]
  - HYPOAESTHESIA [None]
  - GENERAL PHYSICAL HEALTH DETERIORATION [None]
  - HYDRONEPHROSIS [None]
  - LYMPHADENOPATHY [None]
  - DISEASE PROGRESSION [None]
  - URETERIC OBSTRUCTION [None]
